FAERS Safety Report 4553209-0 (Version None)
Quarter: 2005Q1

REPORT INFORMATION
  Report Type: 
  Country: None (occurrence: None)
  Receive Date: 20050113
  Receipt Date: 20050104
  Transmission Date: 20050727
  Serious: Yes (Other)
  Sender: FDA-Public Use
  Company Number: 25944

PATIENT
  Age: 74 Year
  Sex: Male

DRUGS (5)
  1. IMIQUIMOD (IMIQUIMOD) [Suspect]
     Indication: ACTINIC KERATOSIS
     Dosage: 5 IN 1 WEEK(S)), TOPICAL
     Route: 061
     Dates: start: 20041214, end: 20041220
  2. BISOPROLOL FUMARATE [Concomitant]
  3. WARFARIN SODIUM [Concomitant]
  4. VALSARTAN [Concomitant]
  5. SIMVASTATIN [Concomitant]

REACTIONS (1)
  - ERYSIPELAS [None]
